FAERS Safety Report 4398138-0 (Version None)
Quarter: 2004Q3

REPORT INFORMATION
  Report Type: 
  Country: None (occurrence: None)
  Receive Date: 20040713
  Receipt Date: 20040702
  Transmission Date: 20050211
  Serious: Yes (Hospitalization)
  Sender: FDA-Public Use
  Company Number: 2004-02944

PATIENT
  Age: 11 Year
  Sex: Male

DRUGS (3)
  1. METHYLPREDNISOLONE ACETATE (METHYLPREDNISOLONE ACETATE) INJECTION, 20M [Suspect]
     Indication: ASTHMA
     Dosage: 30 MG, BID
  2. PREDNISONE [Suspect]
     Indication: ASTHMA
     Dosage: 50 TO 100 MG, DAILY, ORAL
     Route: 048
  3. TROLEANDOMYCIN [Concomitant]

REACTIONS (1)
  - PNEUMONIA LEGIONELLA [None]
